FAERS Safety Report 8421340-5 (Version None)
Quarter: 2012Q2

REPORT INFORMATION
  Report Type: 
  Country: None (occurrence: None)
  Receive Date: 20120601
  Receipt Date: 20120521
  Transmission Date: 20120825
  Serious: Yes (Death)
  Sender: FDA-Public Use
  Company Number: 1294124

PATIENT

DRUGS (1)
  1. DOCETAXEL [Suspect]
     Dates: start: 20120508

REACTIONS (1)
  - DEATH [None]
